FAERS Safety Report 5050128-0 (Version None)
Quarter: 2006Q3

REPORT INFORMATION
  Report Type: 
  Country: None (occurrence: None)
  Receive Date: 20060707
  Receipt Date: 20060627
  Transmission Date: 20061208
  Serious: Yes (Hospitalization, Other)
  Sender: FDA-Public Use
  Company Number: 430010M05FRA

PATIENT
  Age: 56 Year
  Sex: Female

DRUGS (3)
  1. NOVANTRONE [Suspect]
     Indication: BREAST CANCER FEMALE
  2. 5-FLUOROURACIL (FLUOROURACIL /00098801/) [Suspect]
     Indication: BREAST CANCER FEMALE
     Dosage: INTRAVENOUS
     Route: 042
  3. CYCLOPHOSPHAMIDE [Suspect]
     Indication: BREAST CANCER FEMALE
     Dosage: INTRAVENOUS
     Route: 042

REACTIONS (1)
  - GRANULOMA ANNULARE [None]
